FAERS Safety Report 10565800 (Version 2)
Quarter: 2014Q4

REPORT INFORMATION
  Report Type: Report from Study
  Country: JP (occurrence: JP)
  Receive Date: 20141105
  Receipt Date: 20141105
  Transmission Date: 20150529
  Serious: Yes (Death, Hospitalization)
  Sender: FDA-Public Use
  Company Number: PHHY2010JP50042

PATIENT
  Age: 50 Year
  Sex: Male

DRUGS (8)
  1. ICL670A [Suspect]
     Active Substance: DEFERASIROX
     Dosage: 1500 MG, DAILY
     Route: 048
     Dates: start: 20081020, end: 20090502
  2. LASIX [Concomitant]
     Active Substance: FUROSEMIDE
     Indication: MYELODYSPLASTIC SYNDROME
     Dosage: 40 MG, UNK
     Route: 048
     Dates: start: 200809, end: 20090502
  3. ICL670A [Suspect]
     Active Substance: DEFERASIROX
     Indication: IRON OVERLOAD
     Dosage: 500 MG DAILY
     Route: 048
     Dates: start: 20080902, end: 20080916
  4. URSO [Concomitant]
     Active Substance: URSODIOL
     Indication: MYELODYSPLASTIC SYNDROME
     Dosage: 300 MG, UNK
     Route: 048
     Dates: start: 200809, end: 20090502
  5. NEORAL [Concomitant]
     Active Substance: CYCLOSPORINE
     Indication: MYELODYSPLASTIC SYNDROME
     Dosage: 100 MG, UNK
     Route: 048
     Dates: start: 20080716, end: 20080818
  6. TAKEPRON [Concomitant]
     Active Substance: LANSOPRAZOLE
     Indication: MYELODYSPLASTIC SYNDROME
     Dosage: 15 MG, UNK
     Route: 048
     Dates: start: 200809, end: 20090502
  7. ZYLORIC [Concomitant]
     Active Substance: ALLOPURINOL
     Indication: MYELODYSPLASTIC SYNDROME
     Dosage: 100 MG, UNK
     Route: 048
     Dates: start: 200809, end: 20090502
  8. ICL670A [Suspect]
     Active Substance: DEFERASIROX
     Dosage: 1000 MG, DAILY
     Route: 048
     Dates: start: 20080917, end: 20081019

REACTIONS (2)
  - Multi-organ failure [Fatal]
  - Lower gastrointestinal haemorrhage [Fatal]

NARRATIVE: CASE EVENT DATE: 20090502
